FAERS Safety Report 11931271 (Version 1)
Quarter: 2016Q1

REPORT INFORMATION
  Report Type: Spontaneous
  Country: US (occurrence: US)
  Receive Date: 20160120
  Receipt Date: 20160120
  Transmission Date: 20160526
  Serious: No
  Sender: FDA-Public Use
  Company Number: US-INCYTE CORPORATION-2015IN004505

PATIENT
  Sex: Male
  Weight: 62 kg

DRUGS (11)
  1. VITAMIN D                          /00107901/ [Concomitant]
     Active Substance: ERGOCALCIFEROL
  2. CRESTOR [Concomitant]
     Active Substance: ROSUVASTATIN CALCIUM
  3. JAKAFI [Suspect]
     Active Substance: RUXOLITINIB
     Indication: MYELOFIBROSIS
     Dosage: 5 MG, BID
     Route: 048
     Dates: start: 20150806
  4. VALSARTAN. [Concomitant]
     Active Substance: VALSARTAN
  5. JAKAFI [Suspect]
     Active Substance: RUXOLITINIB
     Indication: POLYCYTHAEMIA VERA
     Dosage: 10 MG, BID
     Route: 048
     Dates: start: 201508
  6. ASPIRIN. [Concomitant]
     Active Substance: ASPIRIN
  7. COREG [Concomitant]
     Active Substance: CARVEDILOL
  8. EPIPEN [Concomitant]
     Active Substance: EPINEPHRINE
  9. GLUCOSAMINE + CHONDROITIN [Concomitant]
     Active Substance: CHONDROITIN SULFATE (BOVINE)\GLUCOSAMINE HYDROCHLORIDE
  10. MVI [Concomitant]
     Active Substance: VITAMINS
  11. OMEGA 3                            /01334101/ [Concomitant]
     Active Substance: OMEGA-3 FATTY ACIDS

REACTIONS (7)
  - Fatigue [Unknown]
  - Diarrhoea [Recovered/Resolved]
  - Heart rate decreased [Unknown]
  - Drug dose omission [Unknown]
  - Hypertension [Unknown]
  - Arthritis [Unknown]
  - Dyspnoea exertional [Not Recovered/Not Resolved]

NARRATIVE: CASE EVENT DATE: 2015
